FAERS Safety Report 7933503 (Version 3)
Quarter: 2013Q2

REPORT INFORMATION
  Report Type: Report from Study
  Country: US (occurrence: US)
  Receive Date: 20110506
  Receipt Date: 20130617
  Transmission Date: 20140414
  Serious: Yes (Hospitalization, Other)
  Sender: FDA-Public Use
  Company Number: US-CELGENEUS-163-21880-11040651

PATIENT
  Age: 72 Year
  Sex: Male
  Weight: 78.22 kg

DRUGS (42)
  1. REVLIMID [Suspect]
     Indication: PLASMA CELL MYELOMA
     Dosage: 25 MILLIGRAM
     Route: 048
     Dates: start: 20110111, end: 20110327
  2. REVLIMID [Suspect]
     Dosage: 25 MILLIGRAM
     Route: 048
     Dates: start: 20110413, end: 20120304
  3. DEXAMETHASONE [Suspect]
     Indication: PLASMA CELL MYELOMA
     Dosage: 40 MILLIGRAM
     Route: 065
     Dates: start: 20110111, end: 20110328
  4. DEXAMETHASONE [Suspect]
     Dosage: 40 MILLIGRAM
     Route: 065
     Dates: start: 20110413, end: 20120305
  5. ACYCLOVIR [Concomitant]
     Indication: ANTIVIRAL PROPHYLAXIS
     Dosage: 800 MILLIGRAM
     Route: 048
     Dates: start: 20051026, end: 20130305
  6. AMLODIPINE [Concomitant]
     Indication: HYPERTENSION
     Dosage: 10
     Route: 048
     Dates: start: 2007, end: 20110706
  7. ASPIRIN [Concomitant]
     Indication: ANTICOAGULANT THERAPY
     Dosage: 81 MILLIGRAM
     Route: 048
     Dates: start: 20071023
  8. ASPIRIN [Concomitant]
     Indication: ANTIPLATELET THERAPY
  9. AZITHROMYCIN [Concomitant]
     Indication: ANTIBIOTIC PROPHYLAXIS
     Dosage: 250 MILLIGRAM
     Route: 048
     Dates: start: 20081006
  10. CALCIUM CARBONATE - VITAMIN D3 [Concomitant]
     Indication: NUTRITIONAL SUPPLEMENTATION
     Dosage: 500 MILLIGRAM
     Route: 048
     Dates: start: 2002
  11. CARVEDILOL [Concomitant]
     Indication: HYPERTENSION
     Dosage: 13 MILLIGRAM
     Route: 048
     Dates: start: 200903
  12. CARDURA [Concomitant]
     Indication: POLLAKIURIA
     Dosage: 2 MILLIGRAM
     Route: 048
     Dates: start: 2008, end: 20110706
  13. CARDURA [Concomitant]
     Indication: HYPERTENSION
  14. FENTANYL [Concomitant]
     Indication: MUSCULOSKELETAL PAIN
     Dosage: 50MCG/HR
     Route: 062
     Dates: start: 20110128, end: 20110407
  15. FENTANYL [Concomitant]
     Indication: NECK PAIN
  16. FENTANYL [Concomitant]
     Indication: PAIN
  17. FOLIC ACID [Concomitant]
     Indication: ANAEMIA
     Route: 048
     Dates: start: 2002
  18. FOLIC ACID [Concomitant]
     Route: 048
     Dates: start: 20031013
  19. IRON [Concomitant]
     Indication: ANAEMIA
     Dosage: 50 MILLIGRAM
     Route: 048
     Dates: start: 2006
  20. LOVENOX [Concomitant]
     Indication: THROMBOSIS PROPHYLAXIS
     Dosage: 40/0.4MG/ML
     Route: 058
     Dates: start: 20110108, end: 20110413
  21. MULTIVITAMINS [Concomitant]
     Indication: NUTRITIONAL SUPPLEMENTATION
     Dosage: 1 TABLET
     Route: 048
  22. MYCELEX TROCHES [Concomitant]
     Indication: PROPHYLAXIS
     Dosage: 3 TABLET
     Route: 048
     Dates: start: 20101229
  23. PAMIDRONATE [Concomitant]
     Indication: BONE DISORDER
     Route: 041
     Dates: start: 20110103
  24. PREVACID [Concomitant]
     Indication: GASTROINTESTINAL DISORDER
     Dosage: 30 MILLIGRAM
     Route: 048
     Dates: start: 20110110
  25. PREVACID [Concomitant]
     Indication: GASTROINTESTINAL DISORDER
  26. SENOKOT-S [Concomitant]
     Indication: CONSTIPATION
     Dosage: 2 TABLET
     Route: 048
     Dates: start: 2003
  27. SPIRONOLACTONE [Concomitant]
     Indication: HYPERTENSION
     Dosage: 25 MILLIGRAM
     Route: 048
     Dates: start: 200803, end: 20110706
  28. VALIUM [Concomitant]
     Indication: ANXIETY
     Route: 048
     Dates: end: 20110308
  29. VICODIN [Concomitant]
     Indication: MUSCULOSKELETAL PAIN
     Route: 048
     Dates: start: 20110128
  30. VICODIN [Concomitant]
     Indication: NECK PAIN
  31. VICODIN [Concomitant]
     Indication: PAIN
  32. VICODIN [Concomitant]
     Indication: BACK PAIN
  33. VICODIN [Concomitant]
     Indication: ARTHRALGIA
  34. VICODIN [Concomitant]
     Indication: PAIN IN EXTREMITY
  35. BLOOD [Concomitant]
     Indication: PRODUCT USED FOR UNKNOWN INDICATION
     Dosage: 2 UNITS
     Route: 041
     Dates: start: 20110401
  36. NORMAL SALINE [Concomitant]
     Indication: PRODUCT USED FOR UNKNOWN INDICATION
     Dosage: 2 LITERS
     Route: 065
     Dates: start: 20110401
  37. DIURETICS [Concomitant]
     Indication: PRODUCT USED FOR UNKNOWN INDICATION
     Route: 041
     Dates: start: 20110402
  38. LASIX [Concomitant]
     Indication: PRODUCT USED FOR UNKNOWN INDICATION
     Dosage: 20 MILLIGRAM
     Route: 065
     Dates: start: 201104
  39. LOSARTAN [Concomitant]
     Indication: CORONARY ARTERY DISEASE
     Dosage: 50 MILLIGRAM
     Route: 048
     Dates: start: 20110316, end: 20110706
  40. LOSARTAN [Concomitant]
     Indication: HYPERTENSION
  41. TONIC WATER [Concomitant]
     Indication: MUSCLE SPASMS
     Dosage: 8 OUNCE
     Route: 048
     Dates: start: 20110322, end: 201103
  42. FLUIDS [Concomitant]
     Indication: BLOOD CREATININE INCREASED
     Dosage: 1 LITERS
     Route: 041
     Dates: start: 20110331, end: 20110331

REACTIONS (3)
  - Pericardial effusion [Unknown]
  - Pleural effusion [Unknown]
  - Pneumonia respiratory syncytial viral [Recovered/Resolved]
